FAERS Safety Report 23841503 (Version 1)
Quarter: 2024Q2

REPORT INFORMATION
  Report Type: Spontaneous
  Country: JP (occurrence: JP)
  Receive Date: 20240510
  Receipt Date: 20240510
  Transmission Date: 20240715
  Serious: Yes (Other)
  Sender: FDA-Public Use
  Company Number: JP-MYE-2024M1039972AA

PATIENT
  Sex: Female

DRUGS (3)
  1. PITAVASTATIN CALCIUM [Suspect]
     Active Substance: PITAVASTATIN CALCIUM
     Indication: Product used for unknown indication
     Route: 048
  2. PRASUGREL HYDROCHLORIDE [Concomitant]
     Active Substance: PRASUGREL HYDROCHLORIDE
     Indication: Product used for unknown indication
     Route: 065
  3. EZETIMIBE [Concomitant]
     Active Substance: EZETIMIBE
     Indication: Product used for unknown indication
     Route: 065

REACTIONS (4)
  - Diabetes mellitus inadequate control [Unknown]
  - Hair colour changes [Recovering/Resolving]
  - Fatigue [Recovering/Resolving]
  - Alopecia [Recovering/Resolving]
